FAERS Safety Report 7731161-4 (Version None)
Quarter: 2011Q3

REPORT INFORMATION
  Report Type: 
  Country: None (occurrence: None)
  Receive Date: 20110906
  Receipt Date: 20110906
  Transmission Date: 20111222
  Serious: Yes (Other)
  Sender: FDA-Public Use
  Company Number: None

PATIENT
  Age: 70 Year
  Sex: Female
  Weight: 53.523 kg

DRUGS (1)
  1. EQUATE [Suspect]
     Indication: INSOMNIA
     Dosage: NORMANLY ONE THIS TIME TWO
     Route: 048
     Dates: start: 20110203, end: 20110903

REACTIONS (1)
  - TREMOR [None]
